FAERS Safety Report 12491357 (Version 2)
Quarter: 2016Q3

REPORT INFORMATION
  Report Type: Spontaneous
  Country: US (occurrence: US)
  Receive Date: 20160623
  Receipt Date: 20160816
  Transmission Date: 20161109
  Serious: Yes (Other)
  Sender: FDA-Public Use
  Company Number: US-ACCORD-041586

PATIENT
  Age: 45 Year
  Sex: Female
  Weight: 102.06 kg

DRUGS (13)
  1. NOVOLIN [Concomitant]
     Active Substance: INSULIN HUMAN
     Indication: TYPE 2 DIABETES MELLITUS
     Dosage: ALSO RECEIVED (N 100 UNIT/ML) 40 UNITS THREE TIMES DAILY  AC, 30 DAYS STARTING 10-MAY-2016.
  2. AMITRIPTYLINE [Concomitant]
     Active Substance: AMITRIPTYLINE
     Indication: SOMNOLENCE
     Dosage: 50 MG BY MOUTH EVERY NIGHT?ALSO 50 MG ONE TABLETS AT EVERY NIGHT DAILY 30 DAYS STARTING 05-APR-2016
  3. LYRICA [Suspect]
     Active Substance: PREGABALIN
     Indication: DIABETIC NEUROPATHY
     Dosage: CURRENTLY 200 MG, THREE TIMES DAILY
  4. OXYBUTYNIN [Concomitant]
     Active Substance: OXYBUTYNIN
  5. GLIMEPIRIDE ACCORD [Suspect]
     Active Substance: GLIMEPIRIDE
     Indication: TYPE 2 DIABETES MELLITUS
     Dosage: STRENGTH: 4 MG?ALSO RECEIVED 4 MG 2 TABLETS DAILY 30 DAYS STARTING 05-APR-2016
  6. CYCLOBENZAPRINE/CYCLOBENZAPRINE HYDROCHLORIDE [Concomitant]
     Indication: MUSCLE RELAXANT THERAPY
     Dosage: 10 MG BY MOUTH AS NEEDED
  7. PROMETHAZINE [Concomitant]
     Active Substance: PROMETHAZINE\PROMETHAZINE HYDROCHLORIDE
     Indication: NAUSEA
     Dosage: 25 MG TABLET AS NEEDED?ALSO RECEIVED 25 MG 1 TABLETS DAILY 30 DAYS STARTING 07-JUN-2016
  8. CITALOPRAM/CITALOPRAM HYDROBROMIDE/CITALOPRAM HYDROCHLORIDE [Concomitant]
  9. SEPTRA [Suspect]
     Active Substance: SULFAMETHOXAZOLE\TRIMETHOPRIM
     Indication: PRODUCT USED FOR UNKNOWN INDICATION
  10. METFORMIN [Suspect]
     Active Substance: METFORMIN HYDROCHLORIDE
     Indication: TYPE 2 DIABETES MELLITUS
     Dosage: ALSO RECEIVED 850 MG 1 TABLETS THREE TIMES DAILY 30 DAYS STARTING 05-APR-2016
  11. RELION INSULIN SYRINGE [Concomitant]
     Dosage: 31GX5/16 DEGREE 0.5 ML?ONE SYRINGE TWO TIMES DAILY, 100 SYRINGE 50 DAYS STARTING 05-MAR-2016.
  12. OXYCODONE/OXYCODONE HYDROCHLORIDE/OXYCODONE PECTINATE/OXYCODONE TEREPHTHALATE [Concomitant]
     Indication: PAIN
     Dosage: 6 TABLETS DAILY?ALSO RECEIVED 10 MG EVERY FOUR HOUR 30 DAYS STARTING 10-MAY-2016.
  13. PROAIR HFA [Concomitant]
     Active Substance: ALBUTEROL SULFATE
     Dosage: 108 (90 BASE) MCG/ACT

REACTIONS (3)
  - Hypersensitivity [Unknown]
  - Amnesia [Not Recovered/Not Resolved]
  - Drug ineffective [Unknown]

NARRATIVE: CASE EVENT DATE: 20130525
